FAERS Safety Report 8270326 (Version 7)
Quarter: 2012Q4

REPORT INFORMATION
  Report Type: Report from Study
  Country: FR (occurrence: FR)
  Receive Date: 20111201
  Receipt Date: 20121226
  Transmission Date: 20130627
  Serious: Yes (Hospitalization)
  Sender: FDA-Public Use
  Company Number: FR-B.I. PHARMACEUTICALS,INC./RIDGEFIELD-2011-FF-01106FF

PATIENT
  Age: 79 None
  Sex: Female
  Weight: 80 kg

DRUGS (4)
  1. PRADAXA [Suspect]
     Indication: THROMBOSIS PROPHYLAXIS
     Dosage: 150 mg
     Route: 048
     Dates: start: 20100331, end: 20100505
  2. LOXEN [Concomitant]
     Indication: ARRHYTHMIA
  3. DIAMICRON [Concomitant]
     Indication: DIABETES MELLITUS
  4. AMIODARONE [Concomitant]
     Indication: ARRHYTHMIA

REACTIONS (4)
  - Inflammation [Recovered/Resolved]
  - Wound secretion [Recovered/Resolved]
  - Scar [Recovered/Resolved]
  - Haematoma [Unknown]
